FAERS Safety Report 5321740-6 (Version None)
Quarter: 2007Q2

REPORT INFORMATION
  Report Type: 
  Country: None (occurrence: None)
  Receive Date: 20070220
  Receipt Date: 20061010
  Transmission Date: 20071010
  Serious: No
  Sender: FDA-Public Use
  Company Number: TPA2006A01794

PATIENT
  Age: 51 Year
  Sex: Female
  Weight: 54.4316 kg

DRUGS (3)
  1. ROZEREM [Suspect]
     Indication: INSOMNIA
     Dosage: 8 MG, QHS AS REQUIRED, PER ORAL
     Route: 048
     Dates: start: 20060420, end: 20060423
  2. PRILOSEC [Concomitant]
  3. ESTRADIOL/TESTOSTERONE (TESTOSTERONE, ESTROGEN NOS) [Concomitant]

REACTIONS (4)
  - ABNORMAL DREAMS [None]
  - DRUG INEFFECTIVE [None]
  - FEELING ABNORMAL [None]
  - MIDDLE INSOMNIA [None]
